FAERS Safety Report 10766673 (Version 1)
Quarter: 2015Q1

REPORT INFORMATION
  Report Type: Report from Study
  Country: CA (occurrence: CA)
  Receive Date: 20150205
  Receipt Date: 20150205
  Transmission Date: 20150721
  Serious: Yes (Other)
  Sender: FDA-Public Use
  Company Number: CA-JNJFOC-20141213210

PATIENT
  Age: 39 Year
  Sex: Male
  Weight: 72.2 kg

DRUGS (3)
  1. IMURAN [Concomitant]
     Active Substance: AZATHIOPRINE
     Route: 065
  2. REMICADE [Suspect]
     Active Substance: INFLIXIMAB
     Indication: CROHN^S DISEASE
     Route: 042
     Dates: start: 20031125, end: 20141216
  3. REMICADE [Suspect]
     Active Substance: INFLIXIMAB
     Indication: CROHN^S DISEASE
     Route: 042
     Dates: start: 20131125

REACTIONS (15)
  - Faeces discoloured [Unknown]
  - Erectile dysfunction [Unknown]
  - Back pain [Unknown]
  - Testicular pain [Unknown]
  - Depression [Unknown]
  - Urinary retention [Unknown]
  - Skin discolouration [Unknown]
  - Vision blurred [Unknown]
  - Testicular mass [Unknown]
  - Influenza [Unknown]
  - Chest pain [Unknown]
  - Dyspnoea [Unknown]
  - Urinary incontinence [Unknown]
  - Swollen tongue [Unknown]
  - Drug ineffective [Not Recovered/Not Resolved]

NARRATIVE: CASE EVENT DATE: 201412
